FAERS Safety Report 5478864-2 (Version None)
Quarter: 2007Q4

REPORT INFORMATION
  Report Type: 
  Country: None (occurrence: None)
  Receive Date: 20071002
  Receipt Date: 20070921
  Transmission Date: 20080405
  Serious: Yes (Other)
  Sender: FDA-Public Use
  Company Number: 07-001946

PATIENT
  Age: 42 Year
  Sex: Female
  Weight: 64.4 kg

DRUGS (3)
  1. LOESTRIN 24 FE [Suspect]
     Indication: IRON DEFICIENCY ANAEMIA
     Dosage: 20/1000UG, ORAL
     Route: 048
     Dates: start: 20070916, end: 20070901
  2. FERROUS GLUCONATE     (FERROUS GLUCONATE) [Concomitant]
  3. ULTRAM           (TRAMADOL HYDROCHLORIDE) SLOW RELEASE [Concomitant]

REACTIONS (5)
  - DEPRESSED MOOD [None]
  - FATIGUE [None]
  - MOOD SWINGS [None]
  - NAUSEA [None]
  - SUICIDAL IDEATION [None]
